FAERS Safety Report 18491656 (Version 1)
Quarter: 2020Q4

REPORT INFORMATION
  Report Type: Spontaneous
  Country: GB (occurrence: GB)
  Receive Date: 20201111
  Receipt Date: 20201111
  Transmission Date: 20210114
  Serious: Yes (Other)
  Sender: FDA-Public Use
  Company Number: GB-ANIPHARMA-2020-UK-000258

PATIENT
  Age: 60 Year
  Sex: Female
  Weight: 85.72 kg

DRUGS (2)
  1. LEVOTHYROXINE SODIUM. [Concomitant]
     Active Substance: LEVOTHYROXINE SODIUM
     Route: 065
  2. CANDESARTAN CILEXETIL. [Suspect]
     Active Substance: CANDESARTAN CILEXETIL
     Indication: PRODUCT USED FOR UNKNOWN INDICATION
     Dosage: 4 MG UNK
     Route: 048
     Dates: start: 20200925, end: 20201002

REACTIONS (4)
  - Dizziness [Unknown]
  - Headache [Unknown]
  - Urticaria [Unknown]
  - Pallor [Not Recovered/Not Resolved]

NARRATIVE: CASE EVENT DATE: 20200925
